FAERS Safety Report 7864064-5 (Version None)
Quarter: 2011Q4

REPORT INFORMATION
  Report Type: 
  Country: None (occurrence: None)
  Receive Date: 20111028
  Receipt Date: 20111018
  Transmission Date: 20120403
  Serious: Yes (Hospitalization)
  Sender: FDA-Public Use
  Company Number: FR-JNJFOC-20111009766

PATIENT
  Age: 67 Year
  Sex: Female

DRUGS (15)
  1. FENTANYL CITRATE [Suspect]
     Indication: SCIATICA
     Route: 002
  2. FENTANYL CITRATE [Suspect]
     Route: 002
     Dates: end: 20110619
  3. CLORAZEPATE DIPOTASSIUM [Suspect]
     Indication: PRODUCT USED FOR UNKNOWN INDICATION
     Route: 048
     Dates: end: 20110619
  4. DURAGESIC-100 [Suspect]
     Route: 062
     Dates: start: 20110601, end: 20110619
  5. STABLON [Concomitant]
     Indication: PRODUCT USED FOR UNKNOWN INDICATION
     Route: 065
  6. LEXOMIL [Suspect]
     Indication: PRODUCT USED FOR UNKNOWN INDICATION
     Route: 048
     Dates: end: 20110619
  7. LASIX [Concomitant]
     Indication: PRODUCT USED FOR UNKNOWN INDICATION
     Route: 065
  8. ACETAMINOPHEN [Concomitant]
     Route: 065
  9. CLONAZEPAM [Suspect]
     Indication: PRODUCT USED FOR UNKNOWN INDICATION
     Route: 048
  10. DURAGESIC-100 [Suspect]
     Indication: SCIATICA
     Route: 062
  11. CLONAZEPAM [Suspect]
     Dosage: 5 GOUTTES/JOUR(S)
     Route: 048
  12. FLUINDIONE [Concomitant]
     Route: 065
  13. LYRICA [Concomitant]
     Indication: PRODUCT USED FOR UNKNOWN INDICATION
     Route: 065
  14. XYZAL [Concomitant]
     Route: 065
  15. TRAMADOL HCL [Concomitant]
     Indication: PRODUCT USED FOR UNKNOWN INDICATION
     Route: 065

REACTIONS (6)
  - ELECTROCARDIOGRAM REPOLARISATION ABNORMALITY [None]
  - DISTURBANCE IN ATTENTION [None]
  - COMA [None]
  - RENAL FAILURE [None]
  - MIOSIS [None]
  - HYPOTENSION [None]
